FAERS Safety Report 17329012 (Version 4)
Quarter: 2020Q1

REPORT INFORMATION
  Report Type: Spontaneous
  Country: US (occurrence: US)
  Receive Date: 20200127
  Receipt Date: 20200324
  Transmission Date: 20200409
  Serious: No
  Sender: FDA-Public Use
  Company Number: US-009507513-2001USA009108

PATIENT
  Sex: Female

DRUGS (2)
  1. ETONOGESTREL (+) ETHINYL ESTRADIOL [Suspect]
     Active Substance: ETHINYL ESTRADIOL\ETONOGESTREL
     Dosage: 1 RING
     Route: 067
     Dates: start: 202001, end: 2020
  2. NUVARING [Suspect]
     Active Substance: ETHINYL ESTRADIOL\ETONOGESTREL
     Dosage: 1 RING
     Route: 067

REACTIONS (11)
  - Vulvovaginal discomfort [Unknown]
  - Migraine [Unknown]
  - Oedema [Unknown]
  - Abdominal distension [Unknown]
  - Breast pain [Unknown]
  - Fluid retention [Unknown]
  - Weight increased [Unknown]
  - Vulvovaginal burning sensation [Unknown]
  - Incorrect product administration duration [Unknown]
  - Adverse drug reaction [Unknown]
  - Anxiety [Unknown]

NARRATIVE: CASE EVENT DATE: 2020
